FAERS Safety Report 14606941 (Version 1)
Quarter: 2018Q1

REPORT INFORMATION
  Report Type: Report from Study
  Country: None (occurrence: US)
  Receive Date: 20180307
  Receipt Date: 20180307
  Transmission Date: 20180509
  Serious: Yes (Other)
  Sender: FDA-Public Use
  Company Number: US-ABBVIE-18K-163-2274782-00

PATIENT
  Sex: Female

DRUGS (2)
  1. HUMIRA [Suspect]
     Active Substance: ADALIMUMAB
     Route: 058
     Dates: start: 201802
  2. HUMIRA [Suspect]
     Active Substance: ADALIMUMAB
     Indication: RHEUMATOID ARTHRITIS
     Route: 058
     Dates: start: 201710, end: 2017

REACTIONS (7)
  - Exposed bone in jaw [Recovered/Resolved]
  - Gingival recession [Unknown]
  - Peripheral swelling [Unknown]
  - Osteonecrosis of jaw [Recovered/Resolved]
  - Spinal fracture [Unknown]
  - Fall [Unknown]
  - Post procedural complication [Unknown]

NARRATIVE: CASE EVENT DATE: 2017
